FAERS Safety Report 19655061 (Version 1)
Quarter: 2021Q3

REPORT INFORMATION
  Report Type: Spontaneous
  Country: GB (occurrence: GB)
  Receive Date: 20210804
  Receipt Date: 20210804
  Transmission Date: 20211014
  Serious: Yes (Other)
  Sender: FDA-Public Use
  Company Number: GB-DEXPHARM-20211208

PATIENT
  Age: 93 Year
  Sex: Female
  Weight: 64 kg

DRUGS (11)
  1. OVESTIN [Concomitant]
     Active Substance: ESTRIOL
     Dosage: APPLY TWICE WEEKLY
     Dates: start: 20201120
  2. BETAMETHASONE VALERATE. [Concomitant]
     Active Substance: BETAMETHASONE VALERATE
     Dosage: USE SPARINGLY NO MORE THAN 5 NIGHTS A WEEK
     Dates: start: 20201120
  3. HYDROMOL CREAM [Concomitant]
     Dosage: 2 SEPARATED DOSES
     Dates: start: 20210506, end: 20210603
  4. CALCIUM CARBONATE. [Concomitant]
     Active Substance: CALCIUM CARBONATE
     Dates: start: 20201120
  5. EPADERM [Concomitant]
     Active Substance: MINERAL OIL\PETROLATUM\WAX, EMULSIFYING
     Dosage: USE AS SOAP SUBSTITUTE AND TO MOISTURISE IRRITA...
     Dates: start: 20201120
  6. FAMOTIDINE. [Concomitant]
     Active Substance: FAMOTIDINE
     Dosage: TAKE ONE OR TWO DAILY
     Dates: start: 20201120
  7. PARACETAMOL [Concomitant]
     Active Substance: ACETAMINOPHEN
     Dosage: ONE OR TWO TO BE TAKEN FOUR TIMES A DAY IF REQU...
     Dates: start: 20201120
  8. ACIDEX [Concomitant]
     Dosage: PEPPERMINT 4 SEPARATED DOSES
     Dates: start: 20201120
  9. LISINOPRIL. [Concomitant]
     Active Substance: LISINOPRIL
     Dates: start: 20210308, end: 20210622
  10. SPIRONOLACTONE. [Concomitant]
     Active Substance: SPIRONOLACTONE
     Dosage: EVERY MORNING
     Dates: start: 20210325, end: 20210506
  11. OMEPRAZOLE. [Suspect]
     Active Substance: OMEPRAZOLE
     Route: 050
     Dates: start: 20210413

REACTIONS (1)
  - Hyponatraemia [Recovered/Resolved]

NARRATIVE: CASE EVENT DATE: 20210716
